FAERS Safety Report 6838190-3 (Version None)
Quarter: 2010Q3

REPORT INFORMATION
  Report Type: 
  Country: None (occurrence: None)
  Receive Date: 20100713
  Receipt Date: 20070604
  Transmission Date: 20110219
  Serious: No
  Sender: FDA-Public Use
  Company Number: US-PFIZER INC-2007042470

PATIENT
  Sex: Male
  Weight: 90.9 kg

DRUGS (7)
  1. CHANTIX [Suspect]
     Indication: SMOKING CESSATION THERAPY
     Dates: start: 20070522
  2. MOTRIN [Suspect]
     Indication: PAIN IN EXTREMITY
  3. LITHIUM [Concomitant]
  4. CAPTOPRIL [Concomitant]
     Indication: HYPERTENSION
  5. CLONAZEPAM [Concomitant]
  6. RISPERDAL [Concomitant]
  7. DOCUSATE [Concomitant]

REACTIONS (4)
  - DRUG INEFFECTIVE [None]
  - HEADACHE [None]
  - NAUSEA [None]
  - SOMNOLENCE [None]
